FAERS Safety Report 8690824 (Version 2)
Quarter: 2013Q4

REPORT INFORMATION
  Report Type: Spontaneous
  Country: US (occurrence: US)
  Receive Date: 20120830
  Receipt Date: 20131101
  Transmission Date: 20140711
  Serious: No
  Sender: FDA-Public Use
  Company Number: US-009507513-1207USA010865

PATIENT
  Age: 86 Year
  Sex: Female

DRUGS (3)
  1. AZASITE [Suspect]
     Dosage: UNK
     Route: 047
     Dates: start: 20120620
  2. DONEPEZIL HYDROCHLORIDE [Concomitant]
     Dosage: 10 MG, QD
  3. AMLODIPINE [Concomitant]
     Dosage: 2.5 MG, BID

REACTIONS (2)
  - Eye irritation [Recovered/Resolved]
  - Product quality issue [Unknown]
